FAERS Safety Report 24180243 (Version 3)
Quarter: 2024Q3

REPORT INFORMATION
  Report Type: Spontaneous
  Country: US (occurrence: US)
  Receive Date: 20240806
  Receipt Date: 20240913
  Transmission Date: 20241016
  Serious: No
  Sender: ROCHE
  Company Number: US-ROCHE-10000041406

PATIENT
  Age: 80 Year
  Sex: Male
  Weight: 85.27 kg

DRUGS (1)
  1. ACTEMRA [Suspect]
     Active Substance: TOCILIZUMAB
     Indication: Giant cell arteritis
     Dosage: 0.9ML
     Route: 058
     Dates: start: 202407

REACTIONS (7)
  - Device malfunction [Unknown]
  - No adverse event [Unknown]
  - Needle issue [Unknown]
  - Syringe issue [Unknown]
  - Wrong technique in device usage process [Unknown]
  - Device use error [Unknown]
  - Accidental exposure to product [Unknown]

NARRATIVE: CASE EVENT DATE: 20240726
